FAERS Safety Report 10146804 (Version 1)
Quarter: 2014Q2

REPORT INFORMATION
  Report Type: Report from Study
  Country: US (occurrence: US)
  Receive Date: 20140501
  Receipt Date: 20140501
  Transmission Date: 20141212
  Serious: Yes (Other)
  Sender: FDA-Public Use
  Company Number: PHEH2014US008337

PATIENT
  Sex: Female

DRUGS (7)
  1. DIOVAN [Suspect]
     Dosage: 2 DF, (40 MG) PER DAY
  2. DIOVAN [Suspect]
     Dosage: UNK UKN, UNK
  3. SPIRONOLACTONE [Concomitant]
     Dosage: UNK UKN, UNK
  4. PREDNISONE [Concomitant]
     Dosage: UNK UKN, UNK
  5. CENTRUM [Concomitant]
     Dosage: UNK UKN, UNK
  6. ASPIRIN [Concomitant]
     Dosage: 1 DF, PER DAY
  7. FEXOFENADINE HYDROCHLORIDE [Concomitant]
     Dosage: UNK UKN, UNK

REACTIONS (2)
  - Pneumonia [Unknown]
  - Blood pressure increased [Unknown]
